FAERS Safety Report 15708218 (Version 6)
Quarter: 2021Q4

REPORT INFORMATION
  Report Type: Spontaneous
  Country: US (occurrence: US)
  Receive Date: 20181211
  Receipt Date: 20211117
  Transmission Date: 20220303
  Serious: No
  Sender: FDA-Public Use
  Company Number: US-PFIZER INC-2018504560

PATIENT
  Age: 58 Year
  Sex: Female
  Weight: 121 kg

DRUGS (1)
  1. XELJANZ XR [Suspect]
     Active Substance: TOFACITINIB CITRATE
     Indication: Rheumatoid arthritis
     Dosage: 11 MG, 1X/DAY
     Route: 048
     Dates: start: 201807

REACTIONS (7)
  - Hypersensitivity [Unknown]
  - Cough [Unknown]
  - Nasopharyngitis [Unknown]
  - Nasal congestion [Unknown]
  - Stress [Unknown]
  - Joint swelling [Unknown]
  - Inflammation [Recovering/Resolving]

NARRATIVE: CASE EVENT DATE: 20200301
